FAERS Safety Report 24791439 (Version 1)
Quarter: 2024Q4

REPORT INFORMATION
  Report Type: Spontaneous
  Country: US (occurrence: US)
  Receive Date: 20241231
  Receipt Date: 20241231
  Transmission Date: 20250115
  Serious: No
  Sender: AMGEN
  Company Number: US-AMGEN-USASP2024254136

PATIENT
  Age: 79 Year
  Sex: Male
  Weight: 113.4 kg

DRUGS (2)
  1. MVASI [Suspect]
     Active Substance: BEVACIZUMAB-AWWB
     Indication: Colorectal cancer
     Dosage: 515 MILLIGRAM (1 X 400 MG VIAL AND 1 X 100MG VIAL OF MVASI)
     Route: 065
  2. MVASI [Suspect]
     Active Substance: BEVACIZUMAB-AWWB
     Dosage: 515 MILLIGRAM (1 X 400 MG VIAL AND 1 X 100MG VIAL OF MVASI)
     Route: 065

REACTIONS (1)
  - Subcutaneous abscess [Unknown]
